FAERS Safety Report 7936200-3 (Version None)
Quarter: 2011Q4

REPORT INFORMATION
  Report Type: 
  Country: None (occurrence: None)
  Receive Date: 20111123
  Receipt Date: 20111117
  Transmission Date: 20120403
  Serious: Yes (Life-Threatening, Congenital Anomaly)
  Sender: FDA-Public Use
  Company Number: US-JNJFOC-20111107905

PATIENT

DRUGS (1)
  1. TOPAMAX [Suspect]
     Indication: FOETAL EXPOSURE DURING PREGNANCY
     Route: 064
     Dates: end: 20101101

REACTIONS (7)
  - MATERNAL DRUGS AFFECTING FOETUS [None]
  - CONGENITAL ANOMALY [None]
  - CRANIOSYNOSTOSIS [None]
  - CLEFT PALATE [None]
  - BODY DYSMORPHIC DISORDER [None]
  - DEAFNESS [None]
  - RESPIRATORY DISORDER [None]
